FAERS Safety Report 8538928-3 (Version None)
Quarter: 2012Q3

REPORT INFORMATION
  Report Type: 
  Country: None (occurrence: None)
  Receive Date: 20120726
  Receipt Date: 20120724
  Transmission Date: 20120928
  Serious: Yes (Hospitalization)
  Sender: FDA-Public Use
  Company Number: FI-ABBOTT-12P-055-0952120-00

PATIENT
  Sex: Female

DRUGS (9)
  1. OXIKLORIN [Concomitant]
  2. REKO [Concomitant]
     Indication: PRODUCT USED FOR UNKNOWN INDICATION
     Dates: start: 20111209
  3. PREDNISOLONE [Concomitant]
     Indication: PRODUCT USED FOR UNKNOWN INDICATION
  4. PENICILLIN V [Concomitant]
     Indication: ERYSIPELAS
  5. HUMIRA [Suspect]
     Indication: RHEUMATOID ARTHRITIS
     Dosage: EVERY OTHER WEEK (PAUSED)
     Route: 058
     Dates: start: 20120419, end: 20120621
  6. OXIKLORIN [Concomitant]
     Indication: PRODUCT USED FOR UNKNOWN INDICATION
     Dates: start: 20120101
  7. ROCEPHIN [Concomitant]
     Indication: ERYSIPELAS
     Route: 042
  8. METHOTREXATE [Concomitant]
     Indication: PRODUCT USED FOR UNKNOWN INDICATION
     Dosage: PAUSED
     Dates: start: 20120419, end: 20120621
  9. METHOTREXATE [Concomitant]
     Dates: start: 20120101

REACTIONS (5)
  - PYREXIA [None]
  - C-REACTIVE PROTEIN INCREASED [None]
  - MOUTH HAEMORRHAGE [None]
  - ERYSIPELAS [None]
  - PETECHIAE [None]
